APPROVED DRUG PRODUCT: CLOTRIMAZOLE AND BETAMETHASONE DIPROPIONATE
Active Ingredient: BETAMETHASONE DIPROPIONATE; CLOTRIMAZOLE
Strength: EQ 0.05% BASE;1%
Dosage Form/Route: LOTION;TOPICAL
Application: A076493 | Product #001 | TE Code: AB
Applicant: SUN PHARMA CANADA INC
Approved: Jul 28, 2004 | RLD: No | RS: Yes | Type: RX